FAERS Safety Report 24830486 (Version 1)
Quarter: 2025Q1

REPORT INFORMATION
  Report Type: Spontaneous
  Country: US (occurrence: US)
  Receive Date: 20250110
  Receipt Date: 20250110
  Transmission Date: 20250409
  Serious: No
  Sender: LUPIN
  Company Number: US-LUPIN PHARMACEUTICALS INC.-2024-12664

PATIENT

DRUGS (1)
  1. RIFAMPIN [Suspect]
     Active Substance: RIFAMPIN
     Indication: Pneumonia
     Dosage: 4 DOSAGE FORM, QD (4 CAPSULES, DAILY)
     Route: 065
     Dates: start: 202402

REACTIONS (3)
  - Illness [Unknown]
  - Product substitution issue [Unknown]
  - Product use in unapproved indication [Unknown]
